FAERS Safety Report 9941423 (Version 1)
Quarter: 2014Q1

REPORT INFORMATION
  Report Type: Report from Study
  Country: US (occurrence: US)
  Receive Date: 20140303
  Receipt Date: 20140303
  Transmission Date: 20141002
  Serious: No
  Sender: FDA-Public Use
  Company Number: US-ABBVIE-13P-163-1043017-00

PATIENT
  Age: 54 Year
  Sex: Female

DRUGS (14)
  1. HUMIRA [Suspect]
     Indication: RHEUMATOID ARTHRITIS
     Dates: start: 20121026
  2. METHOTREXATE [Concomitant]
     Indication: RHEUMATOID ARTHRITIS
  3. PLAQUENIL [Concomitant]
     Indication: RHEUMATOID ARTHRITIS
     Dosage: 400 MG DAILY
  4. CYMBALTA [Concomitant]
     Indication: PAIN MANAGEMENT
  5. DIOVAN [Concomitant]
     Indication: HYPERTENSION
  6. MACRODANTIN [Concomitant]
     Indication: INFECTION PROPHYLAXIS
  7. PROTONIX [Concomitant]
     Indication: GASTROOESOPHAGEAL REFLUX DISEASE
  8. SIMCOR [Concomitant]
     Indication: BLOOD CHOLESTEROL INCREASED
     Dosage: 1000 20 MG DAILY
  9. SYNTHROID [Concomitant]
     Indication: HYPOTHYROIDISM
  10. WELLBUTRIN [Concomitant]
     Indication: FATIGUE
  11. WELLBUTRIN [Concomitant]
     Indication: DEPRESSION
  12. VICODIN [Concomitant]
     Indication: PAIN
     Dosage: 5/500, 1 TAB TWICE DAILY
  13. METRONIDAZOLE [Concomitant]
     Indication: ROSACEA
     Dosage: DAILY
     Route: 061
  14. TRIAMCINOLONE [Concomitant]
     Indication: PSORIASIS
     Dosage: TWICE DAILY
     Route: 061

REACTIONS (2)
  - Injection site reaction [Not Recovered/Not Resolved]
  - Injection site pain [Not Recovered/Not Resolved]
